FAERS Safety Report 17759820 (Version 1)
Quarter: 2020Q2

REPORT INFORMATION
  Report Type: Spontaneous
  Country: US (occurrence: US)
  Receive Date: 20200508
  Receipt Date: 20200508
  Transmission Date: 20200714
  Serious: No
  Sender: FDA-Public Use
  Company Number: US-SA-2020SA118773

PATIENT
  Sex: Female

DRUGS (2)
  1. SELSUN BLUE MOISTURIZING TREATMENT ANTI-DAND. [Concomitant]
     Indication: ROSACEA
  2. SELSUN BLUE 2-IN-1 [Suspect]
     Active Substance: SELENIUM SULFIDE
     Indication: ROSACEA

REACTIONS (1)
  - Therapeutic response decreased [Unknown]
